FAERS Safety Report 9318523 (Version 1)
Quarter: 2013Q2

REPORT INFORMATION
  Report Type: Spontaneous
  Country: US (occurrence: US)
  Receive Date: 20130530
  Receipt Date: 20130530
  Transmission Date: 20140414
  Serious: No
  Sender: FDA-Public Use
  Company Number: US-NOVEN-12US005583

PATIENT
  Age: 7 Year
  Sex: Male

DRUGS (3)
  1. DAYTRANA [Suspect]
     Indication: ATTENTION DEFICIT/HYPERACTIVITY DISORDER
     Dosage: 30 MG, QD
     Route: 062
     Dates: start: 201210
  2. DAYTRANA [Suspect]
     Dosage: 10 MG, QD
     Route: 062
     Dates: start: 201209, end: 201210
  3. CONCERTA [Concomitant]
     Indication: ATTENTION DEFICIT/HYPERACTIVITY DISORDER
     Dosage: 72 MG, UNK
     Route: 048

REACTIONS (5)
  - Disturbance in social behaviour [Not Recovered/Not Resolved]
  - Impulsive behaviour [Not Recovered/Not Resolved]
  - Drug ineffective [Recovered/Resolved]
  - Drug dose omission [Not Recovered/Not Resolved]
  - Product quality issue [Not Recovered/Not Resolved]
